FAERS Safety Report 14851140 (Version 1)
Quarter: 2018Q2

REPORT INFORMATION
  Report Type: Spontaneous
  Country: NO (occurrence: NO)
  Receive Date: 20180507
  Receipt Date: 20180507
  Transmission Date: 20180711
  Serious: Yes (Disabling)
  Sender: FDA-Public Use
  Company Number: NO-B.I. PHARMACEUTICALS,INC./RIDGEFIELD-2018-12-001609

PATIENT
  Age: 64 Year
  Sex: Female
  Weight: 65 kg

DRUGS (4)
  1. SIFROL [Suspect]
     Active Substance: PRAMIPEXOLE
     Indication: RESTLESS LEGS SYNDROME
     Route: 065
     Dates: start: 20131101, end: 20180404
  2. LIPITOR [Concomitant]
     Active Substance: ATORVASTATIN CALCIUM
     Indication: CEREBROVASCULAR ACCIDENT
     Route: 065
     Dates: start: 20150801
  3. PLAVIX [Concomitant]
     Active Substance: CLOPIDOGREL BISULFATE
     Indication: THROMBOSIS
     Route: 065
     Dates: start: 20160915
  4. SOBRIL [Concomitant]
     Active Substance: OXAZEPAM
     Indication: RESTLESS LEGS SYNDROME
     Route: 065
     Dates: start: 20180404

REACTIONS (2)
  - Gambling disorder [Recovered/Resolved with Sequelae]
  - Impulse-control disorder [Recovered/Resolved with Sequelae]

NARRATIVE: CASE EVENT DATE: 20140101
